FAERS Safety Report 16998690 (Version 1)
Quarter: 2019Q4

REPORT INFORMATION
  Report Type: Spontaneous
  Country: US (occurrence: US)
  Receive Date: 20190925
  Receipt Date: 20190925
  Transmission Date: 20200122
  Serious: Yes (Hospitalization)
  Sender: FDA-Public Use
  Company Number: None

PATIENT
  Age: 74 Year
  Sex: Female

DRUGS (16)
  1. ALLOPURINOL. [Concomitant]
     Active Substance: ALLOPURINOL
  2. DICYCLOMINE [Concomitant]
     Active Substance: DICYCLOMINE HYDROCHLORIDE
  3. DORZOLAMIDE [Concomitant]
     Active Substance: DORZOLAMIDE
  4. LATANOPROST. [Concomitant]
     Active Substance: LATANOPROST
  5. ENBREL [Suspect]
     Active Substance: ETANERCEPT
     Indication: PSORIASIS
     Route: 058
     Dates: start: 20180223
  6. SOD BICAR [Concomitant]
  7. VIT D [Concomitant]
     Active Substance: VITAMIN D NOS
  8. DIAZEPAM. [Concomitant]
     Active Substance: DIAZEPAM
  9. PROCHLOPER [Concomitant]
  10. AMLODIPINE [Concomitant]
     Active Substance: AMLODIPINE BESYLATE
  11. METOPROL TAR [Concomitant]
  12. TRAMADOL. [Concomitant]
     Active Substance: TRAMADOL
  13. CALCITRIOL. [Concomitant]
     Active Substance: CALCITRIOL
  14. RANITIDINE. [Concomitant]
     Active Substance: RANITIDINE
  15. TORSEMIDE. [Concomitant]
     Active Substance: TORSEMIDE
  16. BETHANECHOL [Concomitant]
     Active Substance: BETHANECHOL

REACTIONS (1)
  - Pancreatitis [None]

NARRATIVE: CASE EVENT DATE: 2019
